FAERS Safety Report 13240665 (Version 1)
Quarter: 2017Q1

REPORT INFORMATION
  Report Type: Spontaneous
  Country: US (occurrence: US)
  Receive Date: 20170216
  Receipt Date: 20170216
  Transmission Date: 20170428
  Serious: No
  Sender: FDA-Public Use
  Company Number: US-RELYPSA-RLY2016004152

PATIENT
  Age: 76 Year
  Sex: Female

DRUGS (1)
  1. VELTASSA [Suspect]
     Active Substance: PATIROMER
     Indication: PRODUCT USED FOR UNKNOWN INDICATION
     Dosage: 8.4 G, QD
     Route: 048
     Dates: start: 201611, end: 20161128

REACTIONS (4)
  - Decreased appetite [Recovering/Resolving]
  - Weight decreased [Unknown]
  - Retching [Unknown]
  - Product difficult to swallow [Not Recovered/Not Resolved]

NARRATIVE: CASE EVENT DATE: 201611
